FAERS Safety Report 6032708-9 (Version None)
Quarter: 2009Q1

REPORT INFORMATION
  Report Type: 
  Country: None (occurrence: None)
  Receive Date: 20090109
  Receipt Date: 20090105
  Transmission Date: 20090719
  Serious: Yes (Other)
  Sender: FDA-Public Use
  Company Number: JP-ASTRAZENECA-2009AP00321

PATIENT
  Age: 64 Year
  Sex: Female

DRUGS (2)
  1. ARIMIDEX [Suspect]
     Indication: BREAST CANCER
     Route: 048
     Dates: start: 20060509
  2. FARESTON [Suspect]
     Indication: BREAST CANCER
     Route: 048

REACTIONS (1)
  - UTERINE CANCER [None]
